FAERS Safety Report 4754099-3 (Version None)
Quarter: 2005Q3

REPORT INFORMATION
  Report Type: 
  Country: None (occurrence: None)
  Receive Date: 20050824
  Receipt Date: 20050531
  Transmission Date: 20060218
  Serious: No
  Sender: FDA-Public Use
  Company Number: SUS1-2005-00441

PATIENT
  Age: 50 Year
  Sex: Male
  Weight: 85.3 kg

DRUGS (8)
  1. FOSRENOL [Suspect]
     Indication: BLOOD CALCIUM
     Dosage: 500 MG, 3X/DAY; TID
     Dates: start: 20050530
  2. NIACIN [Concomitant]
  3. NORVASC/GRC/ (AMLODIPINE) [Concomitant]
  4. FOLIC ACID [Concomitant]
  5. LISINOPRIL [Concomitant]
  6. VETIA [Concomitant]
  7. ASPIRIN [Concomitant]
  8. CENTRUM (VITAMINS NOS, MINERALS NOS) [Concomitant]

REACTIONS (3)
  - FREQUENT BOWEL MOVEMENTS [None]
  - NAUSEA [None]
  - OFF LABEL USE [None]
